FAERS Safety Report 21812491 (Version 2)
Quarter: 2023Q1

REPORT INFORMATION
  Report Type: Spontaneous
  Country: JP (occurrence: JP)
  Receive Date: 20230103
  Receipt Date: 20230113
  Transmission Date: 20230417
  Serious: Yes (Hospitalization)
  Sender: FDA-Public Use
  Company Number: JP-TEVA-2022-JP-2842285

PATIENT
  Age: 60 Year
  Sex: Male

DRUGS (2)
  1. PREDNISOLONE [Suspect]
     Active Substance: PREDNISOLONE
     Indication: Prophylaxis
     Dosage: 40 MILLIGRAM DAILY; RECEIVED ON DAY 12 OF HOSPITALISATION
     Route: 065
  2. PENICILLIN G [Suspect]
     Active Substance: PENICILLIN G
     Indication: Tertiary syphilis
     Dosage: RECEIVED 24 MILLION UNITS/DAY ON DAY 13 OF HOSPITALISATION
     Route: 042

REACTIONS (2)
  - Drug ineffective [Recovered/Resolved]
  - Jarisch-Herxheimer reaction [Recovered/Resolved]
